FAERS Safety Report 6165425-5 (Version None)
Quarter: 2009Q2

REPORT INFORMATION
  Report Type: 
  Country: None (occurrence: None)
  Receive Date: 20090423
  Receipt Date: 20090420
  Transmission Date: 20091009
  Serious: Yes (Hospitalization)
  Sender: FDA-Public Use
  Company Number: ES-MERCK-0904ESP00042

PATIENT
  Age: 91 Year
  Sex: Female

DRUGS (6)
  1. FOSAMAX [Suspect]
     Route: 048
  2. TRIMETAZIDINE [Suspect]
     Route: 048
  3. ADALAT [Suspect]
     Route: 048
  4. ADIRO [Suspect]
     Route: 048
  5. BOSPORON [Suspect]
     Route: 048
     Dates: start: 20090219, end: 20090223
  6. REMINYL [Suspect]
     Route: 048

REACTIONS (4)
  - DRUG INTERACTION [None]
  - GASTRIC ULCER [None]
  - HAEMATEMESIS [None]
  - MELAENA [None]
